FAERS Safety Report 25499275 (Version 3)
Quarter: 2025Q3

REPORT INFORMATION
  Report Type: Report from Study
  Country: CA (occurrence: CA)
  Receive Date: 20250701
  Receipt Date: 20250730
  Transmission Date: 20251020
  Serious: Yes (Other)
  Sender: TAKEDA
  Company Number: CA-TAKEDA-2025TUS058307

PATIENT
  Age: 37 Year
  Sex: Female
  Weight: 122.4 kg

DRUGS (3)
  1. VEDOLIZUMAB [Suspect]
     Active Substance: VEDOLIZUMAB
     Indication: Colitis ulcerative
  2. Cortiment [Concomitant]
  3. PENTASA [Concomitant]
     Active Substance: MESALAMINE

REACTIONS (7)
  - Haematochezia [Unknown]
  - Rectal haemorrhage [Unknown]
  - Frequent bowel movements [Unknown]
  - Proctitis [Not Recovered/Not Resolved]
  - Platelet count abnormal [Unknown]
  - Anaemia [Unknown]
  - Dyspnoea [Recovered/Resolved]

NARRATIVE: CASE EVENT DATE: 20250501
